FAERS Safety Report 18587341 (Version 2)
Quarter: 2020Q4

REPORT INFORMATION
  Report Type: Spontaneous
  Country: US (occurrence: US)
  Receive Date: 20201207
  Receipt Date: 20201208
  Transmission Date: 20210114
  Serious: No
  Sender: FDA-Public Use
  Company Number: US-ELI_LILLY_AND_COMPANY-US202012003025

PATIENT
  Age: 86 Year
  Sex: Male

DRUGS (2)
  1. FORTEO [Suspect]
     Active Substance: TERIPARATIDE
     Indication: PRODUCT USED FOR UNKNOWN INDICATION
     Dosage: UNK, UNKNOWN
     Route: 065
     Dates: start: 20200301
  2. EYLEA [Concomitant]
     Active Substance: AFLIBERCEPT
     Indication: NEOVASCULAR AGE-RELATED MACULAR DEGENERATION

REACTIONS (4)
  - Fall [Unknown]
  - Arthralgia [Not Recovered/Not Resolved]
  - Joint noise [Unknown]
  - Arthropathy [Unknown]

NARRATIVE: CASE EVENT DATE: 202010
